FAERS Safety Report 7804137 (Version 2)
Quarter: 2013Q4

REPORT INFORMATION
  Report Type: Spontaneous
  Country: US (occurrence: US)
  Receive Date: 20110208
  Receipt Date: 20131003
  Transmission Date: 20140711
  Serious: Yes (Other)
  Sender: FDA-Public Use
  Company Number: US-ALEXION-A201001667

PATIENT
  Age: 50 Year
  Sex: Female

DRUGS (7)
  1. SOLIRIS 300MG [Suspect]
     Indication: HAEMOLYTIC URAEMIC SYNDROME
     Dosage: UNK
     Route: 042
     Dates: start: 20101105
  2. SOLIRIS 300MG [Suspect]
     Indication: OFF LABEL USE
     Dosage: 900 MG, QW
     Route: 042
     Dates: start: 20101109, end: 201012
  3. SOLIRIS 300MG [Suspect]
     Dosage: 1200 MG, Q2W
     Route: 042
     Dates: start: 201012, end: 201012
  4. SOLIRIS 300MG [Suspect]
     Dosage: 900 MG, QW
     Route: 042
     Dates: start: 201012
  5. COMPAZINE                          /00013302/ [Concomitant]
     Dosage: UNK
  6. ZOFRAN                             /00955301/ [Concomitant]
     Dosage: UNK
  7. REGLAN                             /00041901/ [Concomitant]
     Dosage: UNK

REACTIONS (3)
  - Cerebrovascular accident [Recovered/Resolved]
  - Sinusitis [Recovered/Resolved]
  - Nausea [Recovered/Resolved]
